FAERS Safety Report 23942728 (Version 1)
Quarter: 2024Q2

REPORT INFORMATION
  Report Type: Spontaneous
  Country: RO (occurrence: RO)
  Receive Date: 20240605
  Receipt Date: 20240605
  Transmission Date: 20240715
  Serious: Yes (Hospitalization, Other)
  Sender: FDA-Public Use
  Company Number: RO-002147023-NVSC2024RO114148

PATIENT
  Age: 35 Year
  Sex: Male

DRUGS (2)
  1. MIDOSTAURIN [Suspect]
     Active Substance: MIDOSTAURIN
     Indication: Advanced systemic mastocytosis
     Dosage: 100 MG, BID (200 MG/DAY)
     Route: 065
     Dates: start: 202111
  2. NOLIPREL [Concomitant]
     Indication: Product used for unknown indication
     Dosage: UNK
     Route: 065

REACTIONS (21)
  - Epilepsy [Unknown]
  - Coma [Unknown]
  - Acute respiratory failure [Unknown]
  - Hepatic cytolysis [Unknown]
  - Hypokalaemia [Recovered/Resolved]
  - Leukocytosis [Unknown]
  - Rhabdomyolysis [Recovered/Resolved]
  - Pyrexia [Unknown]
  - Loss of consciousness [Unknown]
  - Folate deficiency [Unknown]
  - Coagulopathy [Unknown]
  - Blood lactic acid increased [Recovered/Resolved]
  - Hyponatraemia [Recovered/Resolved]
  - Metabolic acidosis [Recovered/Resolved]
  - Normochromic normocytic anaemia [Unknown]
  - Sinus tachycardia [Unknown]
  - Anaemia [Unknown]
  - Polyuria [Unknown]
  - Somnolence [Unknown]
  - Sedation [Recovered/Resolved]
  - Hypotension [Recovered/Resolved]

NARRATIVE: CASE EVENT DATE: 20220408
